FAERS Safety Report 4579798-8 (Version None)
Quarter: 2005Q1

REPORT INFORMATION
  Report Type: 
  Country: None (occurrence: None)
  Receive Date: 20050203
  Receipt Date: 20031201
  Transmission Date: 20050727
  Serious: No
  Sender: FDA-Public Use
  Company Number: WAES 0312USA00144

PATIENT
  Sex: Male

DRUGS (1)
  1. ELSPAR [Suspect]
     Indication: ACUTE LYMPHOCYTIC LEUKAEMIA
     Dosage: IM
     Route: 030
     Dates: start: 20031125

REACTIONS (2)
  - INJECTION SITE ERYTHEMA [None]
  - INJECTION SITE RASH [None]
